FAERS Safety Report 9508023 (Version 1)
Quarter: 2013Q3

REPORT INFORMATION
  Report Type: Spontaneous
  Country: MD (occurrence: MD)
  Receive Date: 20130909
  Receipt Date: 20130909
  Transmission Date: 20140515
  Serious: Yes (Other)
  Sender: FDA-Public Use
  Company Number: MD-GE HEALTHCARE MEDICAL DIAGNOSTICS-OMPQ-PR-1308S-1072

PATIENT
  Age: 49 Year
  Sex: Male
  Weight: 80 kg

DRUGS (4)
  1. OMNIPAQUE [Suspect]
     Indication: RENAL CANCER
     Route: 042
     Dates: start: 20130820, end: 20130820
  2. OMNIPAQUE [Suspect]
     Indication: DIAGNOSTIC PROCEDURE
  3. SODIUM CHLORIDE [Concomitant]
     Dates: start: 20130820, end: 20130820
  4. DEXAMETHASONE [Concomitant]
     Dates: start: 20130820, end: 20130820

REACTIONS (1)
  - Body temperature increased [Recovered/Resolved]
